FAERS Safety Report 8028770-4 (Version None)
Quarter: 2012Q1

REPORT INFORMATION
  Report Type: 
  Country: None (occurrence: None)
  Receive Date: 20120106
  Receipt Date: 20111228
  Transmission Date: 20120608
  Serious: Yes (Hospitalization)
  Sender: FDA-Public Use
  Company Number: US-MERCK-1106USA04016

PATIENT
  Age: 63 Year
  Sex: Female
  Weight: 49 kg

DRUGS (9)
  1. FOSAMAX [Suspect]
     Route: 048
     Dates: start: 20080616, end: 20101213
  2. OMEGA-3 MARINE TRIGLYCERIDES [Concomitant]
     Route: 065
     Dates: start: 20070101
  3. CALCIUM (UNSPECIFIED) [Concomitant]
     Route: 065
     Dates: start: 20070101
  4. ACTONEL [Suspect]
     Route: 048
     Dates: start: 20050719
  5. FOSAMAX [Suspect]
     Route: 048
     Dates: end: 20010508
  6. FOSAMAX PLUS D [Suspect]
     Indication: OSTEOPOROSIS
     Route: 048
     Dates: start: 20050808
  7. FOSAMAX [Suspect]
     Indication: OSTEOPOROSIS
     Route: 048
     Dates: start: 20020610, end: 20040201
  8. VITAMIN D (UNSPECIFIED) [Concomitant]
     Route: 065
     Dates: start: 20070101
  9. FOSAMAX [Suspect]
     Route: 048
     Dates: start: 20080520, end: 20101213

REACTIONS (39)
  - LIMB INJURY [None]
  - ASTHMA [None]
  - CHONDROPATHY [None]
  - NAUSEA [None]
  - DYSPNOEA [None]
  - ACUTE SINUSITIS [None]
  - ALLERGIC SINUSITIS [None]
  - ABDOMINAL DISCOMFORT [None]
  - MUSCLE INJURY [None]
  - LUMBAR SPINAL STENOSIS [None]
  - HYPERLIPIDAEMIA [None]
  - ONYCHOMYCOSIS [None]
  - DYSTHYMIC DISORDER [None]
  - OSTEOPOROSIS [None]
  - HAEMORRHAGIC ANAEMIA [None]
  - VOMITING [None]
  - SEBORRHOEIC KERATOSIS [None]
  - FEMUR FRACTURE [None]
  - GASTROINTESTINAL DISORDER [None]
  - BACK PAIN [None]
  - PARONYCHIA [None]
  - ARTHRALGIA [None]
  - CATARACT NUCLEAR [None]
  - FALL [None]
  - CHRONIC OBSTRUCTIVE PULMONARY DISEASE [None]
  - INTERVERTEBRAL DISC DEGENERATION [None]
  - ECZEMA [None]
  - BONE DISORDER [None]
  - PLANTAR FASCIITIS [None]
  - LIMB DISCOMFORT [None]
  - HYPERMETROPIA [None]
  - POLYP [None]
  - CONDITION AGGRAVATED [None]
  - OSTEOPENIA [None]
  - TENDONITIS [None]
  - HORDEOLUM [None]
  - SINUSITIS [None]
  - GAIT DISTURBANCE [None]
  - FRACTURE DISPLACEMENT [None]
